FAERS Safety Report 22270171 (Version 1)
Quarter: 2023Q2

REPORT INFORMATION
  Report Type: Spontaneous
  Country: US (occurrence: None)
  Receive Date: 20230428
  Receipt Date: 20230428
  Transmission Date: 20230722
  Serious: Yes (Disabling)
  Sender: FDA-Public Use
  Company Number: None

PATIENT
  Age: 31 Year
  Sex: Female
  Weight: 44.1 kg

DRUGS (2)
  1. METHYLPHENIDATE [Suspect]
     Active Substance: METHYLPHENIDATE
     Indication: Perinatal depression
     Dosage: ?1 TABLET ORAL
     Route: 048
     Dates: start: 20230323, end: 20230421
  2. METHYLPHENIDATE [Suspect]
     Active Substance: METHYLPHENIDATE
     Indication: Attention deficit hyperactivity disorder

REACTIONS (4)
  - Nausea [None]
  - Anger [None]
  - Mood swings [None]
  - Product substitution issue [None]

NARRATIVE: CASE EVENT DATE: 20230328
